FAERS Safety Report 16054011 (Version 2)
Quarter: 2019Q3

REPORT INFORMATION
  Report Type: Report from Study
  Country: JP (occurrence: JP)
  Receive Date: 20190308
  Receipt Date: 20190724
  Transmission Date: 20191004
  Serious: Yes (Death)
  Sender: FDA-Public Use
  Company Number: JP-BAUSCH-BL-2019-006472

PATIENT
  Age: 71 Year
  Sex: Female
  Weight: 32 kg

DRUGS (17)
  1. TIAPRIDE [Concomitant]
     Active Substance: TIAPRIDE
     Indication: PRODUCT USED FOR UNKNOWN INDICATION
     Route: 050
  2. GASCON [Concomitant]
     Active Substance: DIMETHICONE
     Indication: PRODUCT USED FOR UNKNOWN INDICATION
     Route: 050
     Dates: end: 20140717
  3. RIVOTRIL [Concomitant]
     Active Substance: CLONAZEPAM
     Indication: PRODUCT USED FOR UNKNOWN INDICATION
     Route: 050
  4. SERENACE [Concomitant]
     Active Substance: HALOPERIDOL
     Indication: PRODUCT USED FOR UNKNOWN INDICATION
     Route: 050
     Dates: start: 20150718
  5. ERYTHROCIN [Concomitant]
     Active Substance: ERYTHROMYCIN LACTOBIONATE
     Indication: PRODUCT USED FOR UNKNOWN INDICATION
     Route: 050
     Dates: end: 20140717
  6. MUCODYNE [Concomitant]
     Active Substance: CARBOCYSTEINE
     Indication: PRODUCT USED FOR UNKNOWN INDICATION
     Route: 050
     Dates: start: 20140718
  7. HALOPERIDOL. [Concomitant]
     Active Substance: HALOPERIDOL
     Indication: PRODUCT USED FOR UNKNOWN INDICATION
     Route: 050
     Dates: end: 20140717
  8. MAGMITT [Concomitant]
     Active Substance: MAGNESIUM OXIDE
     Indication: PRODUCT USED FOR UNKNOWN INDICATION
     Route: 050
  9. GASCON [Concomitant]
     Active Substance: DIMETHICONE
     Route: 050
     Dates: start: 20140718
  10. MOSAPRIDE CITRATE HYDRATE [Concomitant]
     Active Substance: MOSAPRIDE CITRATE DIHYDRATE
     Indication: PRODUCT USED FOR UNKNOWN INDICATION
     Route: 050
     Dates: start: 20150116
  11. DOMPERIN [Concomitant]
     Indication: PRODUCT USED FOR UNKNOWN INDICATION
     Route: 050
     Dates: start: 20140719
  12. FORSENID [Concomitant]
     Active Substance: SENNOSIDES A AND B
     Indication: PRODUCT USED FOR UNKNOWN INDICATION
     Route: 050
  13. CHOREAZINE TABLETS 12.5 MG [Suspect]
     Active Substance: TETRABENAZINE
     Indication: HUNTINGTON^S DISEASE
     Route: 048
     Dates: start: 20140701
  14. PANTOSIN [Concomitant]
     Active Substance: PANTETHINE
     Indication: PRODUCT USED FOR UNKNOWN INDICATION
     Route: 050
  15. MUCODYNE-DS [Concomitant]
     Active Substance: CARBOCYSTEINE
     Indication: PRODUCT USED FOR UNKNOWN INDICATION
     Route: 050
     Dates: end: 20140717
  16. DOMPERIN DS [Concomitant]
     Indication: PRODUCT USED FOR UNKNOWN INDICATION
     Route: 050
     Dates: end: 20140718
  17. GASMOTIN [Concomitant]
     Active Substance: MOSAPRIDE CITRATE
     Indication: PRODUCT USED FOR UNKNOWN INDICATION
     Route: 050
     Dates: end: 20150115

REACTIONS (2)
  - Huntington^s disease [Fatal]
  - Nasopharyngitis [Recovered/Resolved]

NARRATIVE: CASE EVENT DATE: 20141126
